FAERS Safety Report 4837680-2 (Version None)
Quarter: 2005Q4

REPORT INFORMATION
  Report Type: 
  Country: None (occurrence: None)
  Receive Date: 20051128
  Receipt Date: 20051004
  Transmission Date: 20060501
  Serious: Yes (Hospitalization, Disabling)
  Sender: FDA-Public Use
  Company Number: US-MERCK-0510USA02263

PATIENT
  Age: 61 Year
  Sex: Female
  Weight: 64 kg

DRUGS (8)
  1. VIOXX [Suspect]
     Indication: ARTHRITIS
     Route: 048
     Dates: start: 20010625, end: 20020601
  2. HYDROCODONE HYDROCHLORIDE [Concomitant]
     Route: 065
  3. CLONAZEPAM [Concomitant]
     Route: 065
  4. METOPROLOL [Concomitant]
     Route: 065
  5. WELLBUTRIN [Concomitant]
     Route: 065
  6. ZANAFLEX [Concomitant]
     Route: 065
  7. ZONEGRAN [Concomitant]
     Route: 065
  8. ASPIRIN [Concomitant]
     Route: 065

REACTIONS (22)
  - ANAEMIA OF CHRONIC DISEASE [None]
  - ANGINA UNSTABLE [None]
  - ASTHENIA [None]
  - BLOOD GLUCOSE DECREASED [None]
  - CHEST PAIN [None]
  - CHRONIC OBSTRUCTIVE PULMONARY DISEASE [None]
  - CORONARY ARTERY DISEASE [None]
  - CORONARY ARTERY STENOSIS [None]
  - CYANOSIS [None]
  - DEPRESSION [None]
  - DIABETES MELLITUS [None]
  - DIVERTICULUM [None]
  - DIZZINESS [None]
  - HAEMORRHOIDS [None]
  - HEART INJURY [None]
  - HYPERTENSION [None]
  - MYOCARDIAL INFARCTION [None]
  - MYOCARDIAL ISCHAEMIA [None]
  - OBSTRUCTIVE AIRWAYS DISORDER [None]
  - RASH PRURITIC [None]
  - RENAL CYST [None]
  - SINUS TACHYCARDIA [None]
